FAERS Safety Report 7304009-X (Version None)
Quarter: 2011Q1

REPORT INFORMATION
  Report Type: 
  Country: None (occurrence: None)
  Receive Date: 20110221
  Receipt Date: 20110210
  Transmission Date: 20110831
  Serious: Yes (Hospitalization, Disabling)
  Sender: FDA-Public Use
  Company Number: US-MERCK-1012USA01905

PATIENT
  Age: 46 Year
  Sex: Female
  Weight: 60 kg

DRUGS (4)
  1. FOSAMAX [Suspect]
     Indication: OSTEOPOROSIS
     Route: 048
     Dates: start: 20010101, end: 20081001
  2. FOSAMAX [Suspect]
     Indication: OSTEOPENIA
     Route: 048
     Dates: start: 20010101, end: 20081001
  3. CALCIUM (UNSPECIFIED) [Concomitant]
     Indication: OSTEOPOROSIS
     Route: 065
  4. VITAMINS (UNSPECIFIED) [Concomitant]
     Route: 065

REACTIONS (10)
  - FOOT FRACTURE [None]
  - HYPERCHOLESTEROLAEMIA [None]
  - VITAMIN D DEFICIENCY [None]
  - TOOTH IMPACTED [None]
  - FEMUR FRACTURE [None]
  - HAND FRACTURE [None]
  - FALL [None]
  - BARTHOLIN'S CYST [None]
  - RIB FRACTURE [None]
  - POSTOPERATIVE THROMBOSIS [None]
